FAERS Safety Report 6112772-9 (Version None)
Quarter: 2009Q1

REPORT INFORMATION
  Report Type: 
  Country: None (occurrence: None)
  Receive Date: 20090312
  Receipt Date: 20090305
  Transmission Date: 20090719
  Serious: Yes (Other)
  Sender: FDA-Public Use
  Company Number: US-AMGEN-QUU336993

PATIENT
  Sex: Female

DRUGS (5)
  1. ENBREL [Suspect]
     Indication: RHEUMATOID ARTHRITIS
     Dates: end: 20060101
  2. KINERET [Suspect]
     Indication: RHEUMATOID ARTHRITIS
     Dates: start: 20090227
  3. PERCOCET [Concomitant]
  4. LORAZEPAM [Concomitant]
  5. REMICADE [Concomitant]
     Dates: start: 20060101, end: 20090101

REACTIONS (5)
  - BRONCHOSPASM [None]
  - COLITIS ULCERATIVE [None]
  - INJECTION SITE IRRITATION [None]
  - INJECTION SITE PAIN [None]
  - MALAISE [None]
